FAERS Safety Report 9601885 (Version 2)
Quarter: 2013Q4

REPORT INFORMATION
  Report Type: Spontaneous
  Country: US (occurrence: US)
  Receive Date: 20131007
  Receipt Date: 20131007
  Transmission Date: 20140711
  Serious: Yes (Other)
  Sender: FDA-Public Use
  Company Number: US-ROCHE-1263810

PATIENT
  Age: 39 Year
  Sex: Female
  Weight: 96.25 kg

DRUGS (5)
  1. KADCYLA [Suspect]
     Indication: BREAST CANCER
     Route: 042
     Dates: start: 20130724
  2. OXYCODONE/ACETAMINOPHEN [Concomitant]
     Route: 048
     Dates: end: 20121115
  3. LANSOPRAZOLE [Concomitant]
     Route: 048
     Dates: start: 20130813
  4. MORPHINE [Concomitant]
     Route: 048
     Dates: end: 20130813
  5. METHYLPREDNISOLONE [Concomitant]
     Dosage: DOSE PACK
     Route: 048
     Dates: start: 20130806

REACTIONS (8)
  - Burning sensation [Recovering/Resolving]
  - Breast disorder [Recovering/Resolving]
  - Extravasation [Unknown]
  - Infusion site pain [Unknown]
  - Erythema [Unknown]
  - Swelling [Unknown]
  - Tenderness [Unknown]
  - Pain [Recovering/Resolving]
